FAERS Safety Report 8921996 (Version 1)
Quarter: 2012Q4

REPORT INFORMATION
  Report Type: Spontaneous
  Country: US (occurrence: None)
  Receive Date: 20121120
  Receipt Date: 20121120
  Transmission Date: 20130627
  Serious: Yes (Life-Threatening)
  Sender: FDA-Public Use
  Company Number: None

PATIENT
  Age: 61 Year
  Sex: Male
  Weight: 120.2 kg

DRUGS (1)
  1. SULFASALAZINE [Suspect]
     Indication: ULCERATIVE COLITIS
     Route: 048
     Dates: start: 20121026, end: 20121113

REACTIONS (3)
  - Chills [None]
  - Febrile neutropenia [None]
  - Sepsis [None]
